FAERS Safety Report 7387462 (Version 6)
Quarter: 2013Q2

REPORT INFORMATION
  Report Type: Spontaneous
  Country: US (occurrence: US)
  Receive Date: 20100514
  Receipt Date: 20130607
  Transmission Date: 20140414
  Serious: Yes (Hospitalization)
  Sender: FDA-Public Use
  Company Number: US-BIOGENIDEC-2010BI015284

PATIENT
  Age: 60 Year
  Sex: Female

DRUGS (1)
  1. AVONEX [Suspect]
     Indication: MULTIPLE SCLEROSIS
     Route: 030
     Dates: start: 20051129

REACTIONS (6)
  - Asthenia [Unknown]
  - Colon cancer [Recovered/Resolved]
  - Colon cancer metastatic [Not Recovered/Not Resolved]
  - Lung neoplasm malignant [Recovered/Resolved with Sequelae]
  - Multiple sclerosis relapse [Recovered/Resolved]
  - Dysgraphia [Not Recovered/Not Resolved]
